FAERS Safety Report 21822365 (Version 3)
Quarter: 2023Q1

REPORT INFORMATION
  Report Type: Report from Study
  Country: GB (occurrence: GB)
  Receive Date: 20230105
  Receipt Date: 20230211
  Transmission Date: 20230418
  Serious: Yes (Other)
  Sender: FDA-Public Use
  Company Number: GB-CELLTRION INC.-2022GB017007

PATIENT

DRUGS (18)
  1. BEVACIZUMAB [Suspect]
     Active Substance: BEVACIZUMAB
     Indication: Hepatocellular carcinoma
     Dosage: 1100 MG
     Dates: start: 20210910
  2. ATEZOLIZUMAB [Suspect]
     Active Substance: ATEZOLIZUMAB
     Indication: Hepatocellular carcinoma
     Dosage: 1200 MG
     Route: 042
     Dates: start: 20210910
  3. BENZYDAMINE [Concomitant]
     Active Substance: BENZYDAMINE
     Dosage: DOSE: 4, EVERY 1 DAY
     Dates: start: 20210927
  4. BISOPROLOL [Concomitant]
     Active Substance: BISOPROLOL
     Dosage: DOSE: 2, EVERY 1 DAY
     Dates: start: 20210712
  5. SODIUM PHOSPHATE, MONOBASIC, ANHYDROUS [Concomitant]
     Active Substance: SODIUM PHOSPHATE, MONOBASIC, ANHYDROUS
     Dosage: DOSE: 4, EVERY 1 DAY
     Dates: start: 20210927
  6. CARBIMAZOLE [Concomitant]
     Active Substance: CARBIMAZOLE
     Dosage: DOSE: 3, QD
     Dates: start: 20210812
  7. CHLORAMPHENICOL [Concomitant]
     Active Substance: CHLORAMPHENICOL
     Dosage: DOSE: 4, EVERY 1 DAY
     Dates: start: 20210927
  8. AMOXICILLIN\CLAVULANATE POTASSIUM [Concomitant]
     Active Substance: AMOXICILLIN\CLAVULANATE POTASSIUM
     Dosage: DOSE:3, QD
     Dates: start: 20211001
  9. DERMOL [BENZALKONIUM CHLORIDE;CHLORHEXIDINE HYDROCHLORIDE;ISOPROPYL MY [Concomitant]
     Dosage: DOSE: 1, EVERY 1 DAY
     Dates: start: 20210927
  10. FLUCLOXACILLIN [Concomitant]
     Active Substance: FLUCLOXACILLIN
     Dosage: DOSE: 4, EVERY 1 DAY
     Dates: start: 20210901
  11. FUROSEMIDE [Concomitant]
     Active Substance: FUROSEMIDE
     Dosage: DOSE: 2, QD
  12. HYDROCORTISONE [Concomitant]
     Active Substance: HYDROCORTISONE
     Dosage: DOSE: 2, QD, 1 PERCENT TOPICAL CREAM
     Route: 061
     Dates: start: 20210927
  13. HYPROMELLOSES [Concomitant]
     Active Substance: HYPROMELLOSES
     Dosage: DOSE:3, 0.3% EYE DROPS PRESERVATIVE FREE
     Dates: start: 20210927
  14. LISINOPRIL [Concomitant]
     Active Substance: LISINOPRIL
     Dosage: DOSE: 1, QD
     Dates: start: 20210820
  15. ACETAMINOPHEN [Concomitant]
     Active Substance: ACETAMINOPHEN
     Dosage: DOSE: 1, AS NECESSARY
     Dates: start: 20210927
  16. SODIUM PHOSPHATE, MONOBASIC, ANHYDROUS [Concomitant]
     Active Substance: SODIUM PHOSPHATE, MONOBASIC, ANHYDROUS
     Dosage: DOSAGE TEXT: 1.936 G ORAL EFFERVESCENT TABLET/DOSE: 1, AS NECESSARY
     Route: 048
     Dates: start: 20210927
  17. RIVAROXABAN [Concomitant]
     Active Substance: RIVAROXABAN
     Dosage: DOSE: 1, QD
     Dates: start: 20210712
  18. CAPHOSOL [CALCIUM CHLORIDE;SODIUM CHLORIDE;SODIUM PHOSPHATE DIBASIC;SO [Concomitant]

REACTIONS (5)
  - Palmar-plantar erythrodysaesthesia syndrome [Not Recovered/Not Resolved]
  - Oropharyngeal pain [Unknown]
  - Diarrhoea [Unknown]
  - Candida infection [Unknown]
  - Off label use [Unknown]

NARRATIVE: CASE EVENT DATE: 20211006
